FAERS Safety Report 12213797 (Version 1)
Quarter: 2016Q1

REPORT INFORMATION
  Report Type: Spontaneous
  Country: US (occurrence: None)
  Receive Date: 20160325
  Receipt Date: 20160325
  Transmission Date: 20160526
  Serious: Yes (Hospitalization)
  Sender: FDA-Public Use
  Company Number: None

PATIENT
  Age: 35 Year
  Sex: Female
  Weight: 77.2 kg

DRUGS (1)
  1. CISPLATIN. [Suspect]
     Active Substance: CISPLATIN
     Dates: end: 20160301

REACTIONS (8)
  - Urinary tract infection [None]
  - Acute kidney injury [None]
  - Hyponatraemia [None]
  - Bladder pain [None]
  - Dysuria [None]
  - Body temperature increased [None]
  - Dizziness [None]
  - Anaemia [None]

NARRATIVE: CASE EVENT DATE: 20160313
